FAERS Safety Report 6875517-0 (Version None)
Quarter: 2010Q3

REPORT INFORMATION
  Report Type: 
  Country: None (occurrence: None)
  Receive Date: 20100727
  Receipt Date: 20100721
  Transmission Date: 20110219
  Serious: Yes (Hospitalization)
  Sender: FDA-Public Use
  Company Number: US-B.I. PHARMACEUTICALS,INC./RIDGEFIELD-2010-BP-08246BP

PATIENT
  Sex: Male

DRUGS (7)
  1. COMBIVENT [Suspect]
     Indication: CHRONIC OBSTRUCTIVE PULMONARY DISEASE
     Dosage: 8 PUF
     Route: 055
  2. LOVAZA [Concomitant]
  3. THEOPHYLLINE [Concomitant]
     Indication: CHRONIC OBSTRUCTIVE PULMONARY DISEASE
  4. METOPROLOL SUCCINATE [Concomitant]
  5. ASPIRIN [Concomitant]
     Indication: PROPHYLAXIS
  6. LISINOPRIL [Concomitant]
     Indication: HYPERTENSION
  7. VYTORIN [Concomitant]
     Indication: BLOOD CHOLESTEROL INCREASED

REACTIONS (1)
  - MYOCARDIAL INFARCTION [None]
